FAERS Safety Report 10059489 (Version 2)
Quarter: 2014Q3

REPORT INFORMATION
  Report Type: Spontaneous
  Country: US (occurrence: US)
  Receive Date: 20140404
  Receipt Date: 20140911
  Transmission Date: 20150326
  Serious: Yes (Hospitalization, Congenital Anomaly, Other)
  Sender: FDA-Public Use
  Company Number: US-PFIZER INC-2014091546

PATIENT
  Sex: Male
  Weight: 2.6 kg

DRUGS (19)
  1. VENLAFAXINE [Concomitant]
     Active Substance: VENLAFAXINE HYDROCHLORIDE
     Indication: POSTPARTUM DEPRESSION
     Dosage: 150 MG, 1X/DAY
     Route: 064
     Dates: start: 20100712
  2. NITROFUR MAC [Concomitant]
     Active Substance: NITROFURANTOIN
     Dosage: 50 MG, UNK
     Route: 064
     Dates: start: 20101109
  3. METRONIDAZOLE. [Concomitant]
     Active Substance: METRONIDAZOLE
     Dosage: 500 MG, UNK
     Route: 064
     Dates: start: 20101130
  4. ZANTAC [Concomitant]
     Active Substance: RANITIDINE HYDROCHLORIDE
     Dosage: UNK
     Route: 064
  5. TERBUTALINE [Concomitant]
     Active Substance: TERBUTALINE
     Dosage: UNK
     Route: 064
  6. AZITHROMYCIN [Concomitant]
     Active Substance: AZITHROMYCIN ANHYDROUS
     Dosage: 250 MG, UNK
     Route: 064
     Dates: start: 20100908
  7. PRENATAL VITAMINS [Concomitant]
     Active Substance: VITAMINS
     Dosage: UNK
     Route: 064
  8. EFFEXOR [Suspect]
     Active Substance: VENLAFAXINE HYDROCHLORIDE
     Dosage: UNK
     Route: 064
  9. FLUOXETINE [Concomitant]
     Active Substance: FLUOXETINE\FLUOXETINE HYDROCHLORIDE
     Dosage: 10 MG, UNK
     Route: 064
     Dates: start: 20100712
  10. TYLENOL WITH CODEINE [Concomitant]
     Active Substance: ACETAMINOPHEN\CODEINE PHOSPHATE
     Dosage: UNK
     Route: 064
  11. MECLIZINE [Concomitant]
     Active Substance: MECLIZINE\MECLIZINE HYDROCHLORIDE
     Dosage: 12.5 MG, UNK
     Route: 064
     Dates: start: 20100716
  12. EFFEXOR XR [Concomitant]
     Active Substance: VENLAFAXINE HYDROCHLORIDE
     Indication: POSTPARTUM DEPRESSION
     Dosage: 150 MG, 1X/DAY
     Route: 064
     Dates: start: 20100409
  13. MECLIZINE [Concomitant]
     Active Substance: MECLIZINE\MECLIZINE HYDROCHLORIDE
     Dosage: 12.5 MG, UNK
     Route: 064
     Dates: start: 20100716
  14. NEO/POLY/HC [Concomitant]
     Dosage: 1% OTIC SOLUTION
     Route: 064
     Dates: start: 20100810
  15. BUSPIRONE [Concomitant]
     Active Substance: BUSPIRONE HYDROCHLORIDE
     Dosage: 10 MG, UNK
     Route: 064
     Dates: start: 20100930
  16. FLEXERIL [Concomitant]
     Active Substance: CYCLOBENZAPRINE HYDROCHLORIDE
     Dosage: UNK
     Route: 064
  17. OFLOXACIN. [Concomitant]
     Active Substance: OFLOXACIN
     Dosage: 0.3% OTIC SOLUTION
     Route: 064
     Dates: start: 20100908
  18. HYDROXYZINE PAM [Concomitant]
     Dosage: 25 MG, UNK
     Route: 064
     Dates: start: 20101222
  19. VISTARIL [Concomitant]
     Active Substance: HYDROXYZINE PAMOATE
     Dosage: UNK
     Route: 064

REACTIONS (7)
  - Congenital anomaly [Unknown]
  - Meningomyelocele [Unknown]
  - Talipes [Unknown]
  - Maternal exposure during pregnancy [Unknown]
  - Arnold-Chiari malformation [Unknown]
  - Congenital hydrocephalus [Unknown]
  - Premature baby [Unknown]

NARRATIVE: CASE EVENT DATE: 20110105
